FAERS Safety Report 4816203-8 (Version None)
Quarter: 2005Q4

REPORT INFORMATION
  Report Type: 
  Country: None (occurrence: None)
  Receive Date: 20051026
  Receipt Date: 20051013
  Transmission Date: 20060501
  Serious: Yes (Hospitalization)
  Sender: FDA-Public Use
  Company Number: HQWYE035714OCT05

PATIENT
  Age: 70 Year
  Sex: Female

DRUGS (4)
  1. PROPRANOLOL HYDROCHLORIDE [Suspect]
     Dosage: 80 MG 1X PER 1 DAY; ORAL
     Route: 048
     Dates: start: 20000615, end: 20050713
  2. ODRIK               (TRANDOLAPRIL, ) [Suspect]
     Dosage: 2 MG 2X PER 1 DAY; ORAL
     Route: 048
     Dates: start: 20000615, end: 20050713
  3. ALLOPURINOL [Concomitant]
  4. FUROSEMIDE [Concomitant]

REACTIONS (3)
  - EOSINOPHILIC PNEUMONIA [None]
  - RENAL ANEURYSM [None]
  - RENAL FAILURE [None]
